FAERS Safety Report 5322016-3 (Version None)
Quarter: 2007Q2

REPORT INFORMATION
  Report Type: 
  Country: None (occurrence: None)
  Receive Date: 20070508
  Receipt Date: 20070508
  Transmission Date: 20071010
  Serious: Yes (Hospitalization)
  Sender: FDA-Public Use
  Company Number: None

PATIENT
  Age: 52 Year
  Sex: Male
  Weight: 107.0489 kg

DRUGS (1)
  1. ZELNORM [Suspect]
     Dosage: 1  TWICE PER/DAY

REACTIONS (2)
  - CARDIAC DISORDER [None]
  - PAIN IN EXTREMITY [None]
